FAERS Safety Report 5640104-9 (Version None)
Quarter: 2008Q1

REPORT INFORMATION
  Report Type: 
  Country: None (occurrence: None)
  Receive Date: 20080226
  Receipt Date: 20080226
  Transmission Date: 20080703
  Serious: Yes (Hospitalization)
  Sender: FDA-Public Use
  Company Number: None

PATIENT
  Sex: Female
  Weight: 45.9 kg

DRUGS (2)
  1. CISPLATIN [Suspect]
     Dosage: 84 MG
  2. ERBITUX [Suspect]
     Dosage: 700 MG

REACTIONS (2)
  - NAUSEA [None]
  - VOMITING [None]
